FAERS Safety Report 7715511-0 (Version None)
Quarter: 2011Q3

REPORT INFORMATION
  Report Type: 
  Country: None (occurrence: None)
  Receive Date: 20110822
  Receipt Date: 20110805
  Transmission Date: 20111222
  Serious: Yes (Death, Other)
  Sender: FDA-Public Use
  Company Number: 2011MA011508

PATIENT
  Age: 28 Year
  Sex: Male

DRUGS (5)
  1. 3,4-METHYLENEDIOXYMETHAMPHETAMINE (NO PREF. NAME) [Suspect]
  2. SERTRALINE HYDROCHLORIDE [Suspect]
  3. ETHANOL (ETHANOL) [Suspect]
  4. METHAMPHETAMINE HYDROCHLORIDE [Suspect]
  5. THC (NO PREF. NAME) [Suspect]

REACTIONS (4)
  - TOXICITY TO VARIOUS AGENTS [None]
  - SPINAL COLUMN INJURY [None]
  - HEAD INJURY [None]
  - ROAD TRAFFIC ACCIDENT [None]
